FAERS Safety Report 9189666 (Version 2)
Quarter: 2013Q3

REPORT INFORMATION
  Report Type: Spontaneous
  Country: US (occurrence: US)
  Receive Date: 20130326
  Receipt Date: 20130828
  Transmission Date: 20140515
  Serious: Yes (Hospitalization)
  Sender: FDA-Public Use
  Company Number: US-BAYER-2013-037684

PATIENT
  Age: 30 Year
  Sex: Female
  Weight: 104.31 kg

DRUGS (6)
  1. YAZ [Suspect]
     Indication: ACNE
     Dosage: UNK
     Dates: start: 200401, end: 200403
  2. YASMIN [Suspect]
     Indication: ACNE
     Dosage: UNK
     Dates: start: 200401, end: 200403
  3. OCELLA [Suspect]
     Indication: ACNE
     Dosage: UNK
     Dates: start: 200401, end: 200403
  4. NEXIUM [Concomitant]
  5. MOTRIN [Concomitant]
  6. EFFEXOR [Concomitant]

REACTIONS (6)
  - Cholelithiasis [None]
  - Deep vein thrombosis [None]
  - Pulmonary embolism [Recovering/Resolving]
  - Injury [None]
  - Pain [None]
  - Pain [None]
